FAERS Safety Report 14190639 (Version 1)
Quarter: 2017Q4

REPORT INFORMATION
  Report Type: Spontaneous
  Country: US (occurrence: US)
  Receive Date: 20171115
  Receipt Date: 20171115
  Transmission Date: 20180321
  Serious: No
  Sender: FDA-Public Use
  Company Number: US-BAYER-2017-205373

PATIENT
  Age: 53 Year
  Sex: Male
  Weight: 77 kg

DRUGS (3)
  1. LOTRIMIN ULTRA ANTIFUNGAL [Suspect]
     Active Substance: BUTENAFINE HYDROCHLORIDE
     Indication: SKIN INFECTION
     Dosage: UNK
     Route: 061
     Dates: start: 20170910, end: 20171022
  2. LOTRIMIN ULTRA [Suspect]
     Active Substance: BUTENAFINE HYDROCHLORIDE
     Indication: SKIN INFECTION
     Dosage: TWICE TO THREE TIMES A DAY DOSE
     Route: 061
     Dates: start: 20170805, end: 20170910
  3. LOTRIMIN [Suspect]
     Active Substance: CLOTRIMAZOLE
     Indication: SKIN INFECTION
     Dosage: ;TWICE TO THREE TIMES A DAY DOSE
     Route: 061
     Dates: start: 20170920

REACTIONS (5)
  - Product use in unapproved indication [Unknown]
  - Product use issue [Unknown]
  - Inappropriate schedule of drug administration [Unknown]
  - Wrong technique in product usage process [Unknown]
  - Drug effective for unapproved indication [Unknown]

NARRATIVE: CASE EVENT DATE: 2017
